FAERS Safety Report 9236184 (Version 1)
Quarter: 2013Q1

REPORT INFORMATION
  Report Type: Spontaneous
  Country: US (occurrence: None)
  Receive Date: 20121031
  Receipt Date: 20121031
  Transmission Date: 20140127
  Serious: No
  Sender: FDA-Public Use
  Company Number: PHEH2012US013641

PATIENT
  Age: 41 Year
  Sex: Male

DRUGS (8)
  1. GILENYA [Suspect]
     Indication: MULTIPLE SCLEROSIS
     Route: 048
     Dates: start: 201103
  2. GABAPENTIN (GABAPENTIN) [Concomitant]
  3. DOXAZOSIN MESILATE (DOXAZOSIN MESILATE) [Concomitant]
  4. SERTRALINE HYDROCHLORIDE (SERTRALINE HYDROCHLORIDE) [Concomitant]
  5. BACLOFEN (BACLOFEN) [Concomitant]
  6. TRAZODONE (TRAZODONE) [Concomitant]
  7. KLOR-CON (POTASSIUM CHLORIDE) [Concomitant]
  8. AMANTADINE (AMANTADINE) [Concomitant]

REACTIONS (1)
  - Oedema peripheral [None]
